FAERS Safety Report 6572389-9 (Version None)
Quarter: 2010Q1

REPORT INFORMATION
  Report Type: 
  Country: None (occurrence: None)
  Receive Date: 20100201
  Receipt Date: 20100126
  Transmission Date: 20100710
  Serious: Yes (Hospitalization)
  Sender: FDA-Public Use
  Company Number: SPV1-2010-00154

PATIENT
  Age: 67 Year
  Sex: Female

DRUGS (1)
  1. FOSRENOL [Suspect]
     Indication: HYPERPHOSPHATAEMIA
     Dosage: 2000 MG, EACH MEAL, ORAL
     Route: 048
     Dates: start: 20080101

REACTIONS (1)
  - BLOOD POTASSIUM INCREASED [None]
